FAERS Safety Report 4556053-3 (Version None)
Quarter: 2005Q1

REPORT INFORMATION
  Report Type: 
  Country: None (occurrence: None)
  Receive Date: 20050119
  Receipt Date: 20050111
  Transmission Date: 20050727
  Serious: Yes (Hospitalization)
  Sender: FDA-Public Use
  Company Number: FR-GLAXOSMITHKLINE-B0364176A

PATIENT
  Age: 78 Year
  Sex: Male

DRUGS (8)
  1. AVODART [Suspect]
     Dosage: .5MG PER DAY
     Route: 048
     Dates: start: 20041115, end: 20050105
  2. LEVOTHYROX [Suspect]
     Dosage: 150MCG PER DAY
     Route: 048
     Dates: start: 20010615
  3. PREVISCAN [Suspect]
     Dosage: 10MG PER DAY
     Route: 048
     Dates: start: 20040615, end: 20041221
  4. TARDYFERON [Suspect]
     Dosage: 80MG PER DAY
     Route: 048
     Dates: start: 20040615
  5. CORDARONE [Suspect]
     Route: 048
     Dates: start: 20030615
  6. OMEPRAZOLE [Suspect]
     Dosage: 10MG PER DAY
     Route: 048
     Dates: start: 20040615, end: 20050101
  7. ATARAX [Suspect]
     Dosage: 2UNIT PER DAY
     Route: 048
     Dates: start: 20040615
  8. CALCIPARINE [Concomitant]
     Dates: start: 20041218, end: 20041219

REACTIONS (6)
  - BLOOD CREATININE INCREASED [None]
  - DERMATITIS EXFOLIATIVE [None]
  - PRURITUS [None]
  - RASH MACULO-PAPULAR [None]
  - RENAL FAILURE ACUTE [None]
  - URTICARIA [None]
